FAERS Safety Report 5651089-3 (Version None)
Quarter: 2008Q1

REPORT INFORMATION
  Report Type: 
  Country: None (occurrence: None)
  Receive Date: 20080305
  Receipt Date: 20080226
  Transmission Date: 20080703
  Serious: Yes (Hospitalization)
  Sender: FDA-Public Use
  Company Number: US-ELI_LILLY_AND_COMPANY-US200801006426

PATIENT
  Sex: Female

DRUGS (2)
  1. FORTEO [Suspect]
     Dosage: UNK, UNK
     Dates: start: 20061001, end: 20070101
  2. FORTEO [Suspect]
     Dates: start: 20071201

REACTIONS (4)
  - ABDOMINAL ADHESIONS [None]
  - ARTHRALGIA [None]
  - MUSCULAR WEAKNESS [None]
  - SMALL INTESTINAL OBSTRUCTION [None]
